FAERS Safety Report 4383217-4 (Version None)
Quarter: 2004Q2

REPORT INFORMATION
  Report Type: 
  Country: None (occurrence: None)
  Receive Date: 20040618
  Receipt Date: 20040610
  Transmission Date: 20050107
  Serious: Yes (Hospitalization, Other)
  Sender: FDA-Public Use
  Company Number: 2004028002

PATIENT
  Age: 15 Year
  Sex: Male

DRUGS (1)
  1. ZYRTEC [Suspect]
     Indication: DERMATITIS ATOPIC
     Dosage: 10 MG (DAILY), ORAL
     Route: 048
     Dates: start: 20040407, end: 20040420

REACTIONS (1)
  - PANCREATITIS ACUTE [None]
